FAERS Safety Report 6286201-9 (Version None)
Quarter: 2009Q3

REPORT INFORMATION
  Report Type: 
  Country: None (occurrence: None)
  Receive Date: 20090728
  Receipt Date: 20090717
  Transmission Date: 20100115
  Serious: Yes (Life-Threatening)
  Sender: FDA-Public Use
  Company Number: CN-NOVOPROD-288715

PATIENT
  Age: 54 Year
  Sex: Male
  Weight: 75 kg

DRUGS (5)
  1. NOVOLOG MIX 70/30 [Suspect]
     Indication: TYPE 2 DIABETES MELLITUS
     Route: 058
  2. NOVOLIN R [Suspect]
     Indication: TYPE 2 DIABETES MELLITUS
     Dosage: 58 IU, QD
     Route: 058
     Dates: start: 20090429
  3. METFORMIN HYDROCHLORIDE [Concomitant]
     Dosage: 1500 MG, QD
     Route: 048
     Dates: start: 19990501
  4. ACARBOSE [Concomitant]
     Dosage: 150 MG, QD
     Route: 048
     Dates: start: 20070101
  5. PIOGLITAZONE HCL [Concomitant]
     Dosage: 15 MG, QD
     Route: 048
     Dates: start: 20090601, end: 20090614

REACTIONS (4)
  - ANAPHYLACTIC REACTION [None]
  - INJECTION SITE PRURITUS [None]
  - INJECTION SITE URTICARIA [None]
  - VISION BLURRED [None]
